FAERS Safety Report 25937857 (Version 2)
Quarter: 2025Q4

REPORT INFORMATION
  Report Type: Spontaneous
  Country: EU (occurrence: EU)
  Receive Date: 20251018
  Receipt Date: 20251209
  Transmission Date: 20260118
  Serious: Yes (Life-Threatening, Hospitalization, Other)
  Sender: MERCK SHARP & DOHME LLC
  Company Number: None

PATIENT
  Age: 16 Month
  Sex: Female
  Weight: 10 kg

DRUGS (2)
  1. M-M-RVAXPRO [Suspect]
     Active Substance: MEASLES VIRUS STRAIN ENDERS^ ATTENUATED EDMONSTON LIVE ANTIGEN\MUMPS VIRUS STRAIN B LEVEL JERYL LYNN
     Indication: Immunisation
     Dosage: TIME INTERVAL: TOTAL
     Dates: start: 20250904, end: 20250904
  2. STERILE DILUENT (WATER) [Suspect]
     Active Substance: WATER
     Indication: Immunisation
     Dates: start: 20250904, end: 20250904

REACTIONS (9)
  - Vomiting [Recovering/Resolving]
  - Loss of consciousness [Recovering/Resolving]
  - Foaming at mouth [Recovered/Resolved]
  - Gastroenteritis [Unknown]
  - Respiratory arrest [Recovered/Resolved]
  - Generalised tonic-clonic seizure [Recovered/Resolved]
  - Dyspnoea [Recovered/Resolved]
  - Diarrhoea [Recovering/Resolving]
  - Gaze palsy [Recovered/Resolved]

NARRATIVE: CASE EVENT DATE: 20250901
